FAERS Safety Report 6980834-X (Version None)
Quarter: 2010Q3

REPORT INFORMATION
  Report Type: 
  Country: None (occurrence: None)
  Receive Date: 20100914
  Receipt Date: 20100902
  Transmission Date: 20110219
  Serious: Yes (Hospitalization)
  Sender: FDA-Public Use
  Company Number: DE-ELI_LILLY_AND_COMPANY-DE201009000822

PATIENT
  Sex: Female

DRUGS (1)
  1. PEMETREXED [Suspect]
     Dosage: UNK, UNKNOWN
     Route: 042

REACTIONS (2)
  - LOSS OF CONSCIOUSNESS [None]
  - RENAL FAILURE ACUTE [None]
